FAERS Safety Report 22070587 (Version 1)
Quarter: 2023Q1

REPORT INFORMATION
  Report Type: Spontaneous
  Country: US (occurrence: US)
  Receive Date: 20230307
  Receipt Date: 20230307
  Transmission Date: 20230417
  Serious: No
  Sender: FDA-Public Use
  Company Number: US-PFIZER INC-202300092470

PATIENT
  Age: 52 Year
  Sex: Female

DRUGS (2)
  1. PAXLOVID [Suspect]
     Active Substance: NIRMATRELVIR\RITONAVIR
     Indication: COVID-19 treatment
     Dosage: ONE PILL IN THE MORNING AND ONE IN THE EVENING
     Route: 048
     Dates: start: 20230227, end: 20230301
  2. PAXLOVID [Suspect]
     Active Substance: NIRMATRELVIR\RITONAVIR
     Dosage: PF-07321332 300 MG]/[RITONAVIR 100 MG
     Dates: start: 20230301, end: 20230301

REACTIONS (13)
  - Vomiting [Unknown]
  - Diarrhoea [Unknown]
  - Dysgeusia [Unknown]
  - Abdominal pain upper [Unknown]
  - Chromatopsia [Unknown]
  - Rash [Unknown]
  - Pruritus [Unknown]
  - Cough [Unknown]
  - Headache [Unknown]
  - Ageusia [Unknown]
  - Anosmia [Recovering/Resolving]
  - Incorrect dose administered [Unknown]
  - Product design issue [Unknown]

NARRATIVE: CASE EVENT DATE: 20230101
